FAERS Safety Report 24249392 (Version 1)
Quarter: 2024Q3

REPORT INFORMATION
  Report Type: Spontaneous
  Country: CH (occurrence: CH)
  Receive Date: 20240826
  Receipt Date: 20240826
  Transmission Date: 20241017
  Serious: Yes (Other)
  Sender: TEVA
  Company Number: None

PATIENT
  Sex: Female
  Weight: 2.16 kg

DRUGS (9)
  1. IBUPROFEN [Suspect]
     Active Substance: IBUPROFEN
     Indication: Sinusitis
     Dosage: TIME INTERVAL: AS NECESSARY: IRFEN
     Route: 064
     Dates: start: 20230418, end: 20230424
  2. IBUPROFEN [Suspect]
     Active Substance: IBUPROFEN
     Indication: Sinusitis
     Dosage: IRFEN, 1 IN THE MORNING AND 1 IN THE EVENING FOR 4 DAYS
     Route: 064
     Dates: start: 20230414, end: 20230417
  3. PREDNISONE [Suspect]
     Active Substance: PREDNISONE
     Indication: Sinusitis
     Dosage: 1X/DAY FOR 3 DAYS
     Route: 064
     Dates: start: 20230421, end: 20230424
  4. BILASTINE [Suspect]
     Active Substance: BILASTINE
     Indication: Seasonal allergy
     Route: 064
     Dates: start: 20230404, end: 20230417
  5. AMOXICILLIN\CLAVULANIC ACID [Suspect]
     Active Substance: AMOXICILLIN\CLAVULANIC ACID
     Indication: Sinusitis
     Dosage: CO-AMOXI, 3X/DAY (10 DAYS IN TOTAL)
     Route: 064
     Dates: start: 20230414, end: 20230424
  6. DYMISTA [Suspect]
     Active Substance: AZELASTINE HYDROCHLORIDE\FLUTICASONE PROPIONATE
     Indication: Seasonal allergy
     Route: 064
     Dates: start: 20230404, end: 20230417
  7. MYCOSTATIN [Suspect]
     Active Substance: NYSTATIN
     Indication: Oral fungal infection
     Dosage: 100^000 U/ML, 4X/DAY FOR 7 DAYS (ORAL MYCOSIS)
     Route: 064
     Dates: start: 20230403, end: 20230410
  8. OLOPATADINE [Suspect]
     Active Substance: OLOPATADINE
     Indication: Seasonal allergy
     Route: 064
     Dates: start: 20230404, end: 20230417
  9. PERENTEROL [Suspect]
     Active Substance: SACCHAROMYCES CEREVISIAE
     Indication: Sinusitis
     Route: 064
     Dates: start: 20230414, end: 20230424

REACTIONS (2)
  - Foetal growth restriction [Recovering/Resolving]
  - Foetal exposure during pregnancy [Recovered/Resolved]

NARRATIVE: CASE EVENT DATE: 20230404
